FAERS Safety Report 4320238-1 (Version None)
Quarter: 2004Q1

REPORT INFORMATION
  Report Type: 
  Country: None (occurrence: None)
  Receive Date: 20040317
  Receipt Date: 20040303
  Transmission Date: 20041129
  Serious: Yes (Hospitalization)
  Sender: FDA-Public Use
  Company Number: 2004014957

PATIENT
  Age: 84 Year
  Sex: Female

DRUGS (4)
  1. ZELDOX (CAPSULES) (ZIPRASIDONE) [Suspect]
     Indication: DEMENTIA ALZHEIMER'S TYPE
     Dosage: 40 MG, ORAL
     Route: 048
     Dates: start: 20031107, end: 20031110
  2. CAPTOPRIL [Concomitant]
  3. FUROSEMIDE [Concomitant]
  4. METAMIZOLE SODIUM (METAMIZOLE SODIUM) [Concomitant]

REACTIONS (4)
  - CIRCULATORY COLLAPSE [None]
  - DEMENTIA [None]
  - DISEASE PROGRESSION [None]
  - GRAND MAL CONVULSION [None]
